FAERS Safety Report 24422243 (Version 6)
Quarter: 2025Q1

REPORT INFORMATION
  Report Type: Spontaneous
  Country: US (occurrence: US)
  Receive Date: 20241010
  Receipt Date: 20250304
  Transmission Date: 20250409
  Serious: Yes (Other)
  Sender: GLAXOSMITHKLINE
  Company Number: US-GSK-US2024121502

PATIENT

DRUGS (2)
  1. BENLYSTA [Suspect]
     Active Substance: BELIMUMAB
     Indication: Systemic lupus erythematosus
     Dates: start: 2019, end: 202407
  2. BENLYSTA [Suspect]
     Active Substance: BELIMUMAB

REACTIONS (6)
  - Thrombosis [Unknown]
  - Arthritis [Unknown]
  - Amnesia [Not Recovered/Not Resolved]
  - Skin laceration [Unknown]
  - Fibromyalgia [Unknown]
  - Product dose omission issue [Unknown]

NARRATIVE: CASE EVENT DATE: 20240901
